FAERS Safety Report 5235758-5 (Version None)
Quarter: 2007Q1

REPORT INFORMATION
  Report Type: 
  Country: None (occurrence: None)
  Receive Date: 20070212
  Receipt Date: 20070206
  Transmission Date: 20070707
  Serious: Yes (Other)
  Sender: FDA-Public Use
  Company Number: IE-AVENTIS-200710321GDDC

PATIENT
  Age: 34 Year
  Sex: Female

DRUGS (3)
  1. TAXOTERE [Suspect]
     Indication: BREAST CANCER
     Dosage: DOSE: 137 MG
     Route: 042
     Dates: start: 20061215, end: 20061215
  2. TAXOTERE [Suspect]
     Route: 042
     Dates: start: 20070105, end: 20070105
  3. DEXAMETHASONE TAB [Concomitant]
     Route: 042

REACTIONS (3)
  - CHILLS [None]
  - CYANOSIS [None]
  - TREMOR [None]
